FAERS Safety Report 9894463 (Version 2)
Quarter: 2014Q2

REPORT INFORMATION
  Report Type: Spontaneous
  Country: IT (occurrence: IT)
  Receive Date: 20140213
  Receipt Date: 20140414
  Transmission Date: 20141212
  Serious: Yes (Hospitalization)
  Sender: FDA-Public Use
  Company Number: IT-PFIZER INC-2014036876

PATIENT
  Age: 61 Year
  Sex: Male

DRUGS (7)
  1. TYGACIL [Suspect]
     Indication: URINARY TRACT INFECTION
     Dosage: 100 MG, 1X/DAY
     Route: 042
     Dates: start: 20140120, end: 20140131
  2. GENTAMICINA SOLFATO ITALFARMACO [Concomitant]
     Indication: URINARY TRACT INFECTION
     Dosage: 240 MG, UNK
     Route: 042
     Dates: start: 20140120, end: 20140131
  3. SEQUACOR [Concomitant]
     Dosage: 2 DF, UNK
     Route: 048
     Dates: start: 20140117, end: 20140204
  4. CARDIOASPIRIN [Concomitant]
     Dosage: 1 DF, UNK
     Route: 048
     Dates: start: 20140117, end: 20140204
  5. DEPONIT [Concomitant]
     Dosage: 1 DF, UNK
     Route: 062
     Dates: start: 20140117, end: 20140204
  6. CLEXANE [Concomitant]
     Dosage: 2 DF, UNK
     Route: 030
     Dates: start: 20140117, end: 20140204
  7. OXYCONTIN [Concomitant]
     Dosage: 3 DF, UNK
     Route: 048
     Dates: start: 20140117, end: 20140204

REACTIONS (1)
  - Hepatitis cholestatic [Recovering/Resolving]
